FAERS Safety Report 11393895 (Version 3)
Quarter: 2015Q3

REPORT INFORMATION
  Report Type: Spontaneous
  Country: US (occurrence: US)
  Receive Date: 20150819
  Receipt Date: 20150914
  Transmission Date: 20151125
  Serious: Yes (Hospitalization)
  Sender: FDA-Public Use
  Company Number: US-ACCORD-033081

PATIENT
  Age: 24 Year
  Sex: Male

DRUGS (15)
  1. CEFEPIME [Concomitant]
     Active Substance: CEFEPIME HYDROCHLORIDE
  2. MICAFUNGIN/MICAFUNGIN SODIUM [Concomitant]
     Indication: PANCREATIC PSEUDOCYST
  3. HEPARIN [Concomitant]
     Active Substance: HEPARIN SODIUM
     Indication: THROMBOPHLEBITIS SUPERFICIAL
     Dosage: 48-HOUR TRIAL OF HEPARIN INFUSION
  4. GENTAMICIN. [Concomitant]
     Active Substance: GENTAMICIN
     Indication: INFECTION
  5. LINEZOLID. [Concomitant]
     Active Substance: LINEZOLID
  6. MEROPENEM. [Concomitant]
     Active Substance: MEROPENEM
  7. LEVETIRACETAM. [Suspect]
     Active Substance: LEVETIRACETAM
     Indication: SEIZURE
     Dosage: 2000-MG LOADING DOSE OF LEVETIRACETAM
  8. VANCOMYCIN [Concomitant]
     Active Substance: VANCOMYCIN
     Indication: MENINGITIS
  9. CEFTRIAXONE. [Concomitant]
     Active Substance: CEFTRIAXONE
     Indication: MENINGITIS
  10. METRONIDAZOLE. [Concomitant]
     Active Substance: METRONIDAZOLE
  11. ERTAPENEM/ERTAPENEM SODIUM [Concomitant]
     Indication: INFECTION
  12. ACICLOVIR [Concomitant]
     Active Substance: ACYCLOVIR
     Indication: MENINGITIS
  13. DAPTOMYCIN. [Concomitant]
     Active Substance: DAPTOMYCIN
     Dosage: 24 HOURS OF DAPTOMYCIN
  14. TOBRAMYCIN. [Concomitant]
     Active Substance: TOBRAMYCIN
     Indication: PROPHYLAXIS
  15. FLUCONAZOLE. [Concomitant]
     Active Substance: FLUCONAZOLE
     Indication: INFECTION

REACTIONS (2)
  - Pyrexia [Recovered/Resolved]
  - Eosinophilia [Recovered/Resolved]
